FAERS Safety Report 7691147-5 (Version None)
Quarter: 2011Q3

REPORT INFORMATION
  Report Type: 
  Country: None (occurrence: None)
  Receive Date: 20110818
  Receipt Date: 20110816
  Transmission Date: 20111222
  Serious: Yes (Life-Threatening, Hospitalization)
  Sender: FDA-Public Use
  Company Number: CA-PFIZER INC-2011097906

PATIENT
  Age: 42 Year
  Sex: Female
  Weight: 94 kg

DRUGS (10)
  1. METFORMIN [Concomitant]
     Indication: INSULIN RESISTANCE
     Dosage: 500 MG, 2X/DAY
  2. REACTINE [Concomitant]
     Indication: HYPERSENSITIVITY
     Dosage: 10 MG DAILY, AS NEEDED
  3. EFFEXOR XR [Concomitant]
     Dosage: 75 MG, UNK
  4. PRAVASTATIN SODIUM [Concomitant]
     Indication: HYPERCHOLESTEROLAEMIA
     Dosage: 20 MG, 1X/DAY
  5. VERAPAMIL HYDROCHLORIDE [Concomitant]
     Indication: HYPERTENSION
     Dosage: 360 MG, 1X/DAY
  6. VARENICLINE TARTRATE [Suspect]
     Dosage: 0.5 MG, 2X/DAY FOR 4 DAYS
     Route: 048
     Dates: start: 20090101, end: 20090101
  7. VENTOLIN HFA [Concomitant]
     Indication: ASTHMA
     Dosage: 2 INHALATIONS 4 TIMES DAILY, AS NEEDED
     Route: 055
  8. VARENICLINE TARTRATE [Suspect]
     Dosage: 1.0 MG, 2X/DAY FOR 48 DAYS
     Route: 048
     Dates: start: 20090101
  9. VARENICLINE TARTRATE [Suspect]
     Indication: SMOKING CESSATION THERAPY
     Dosage: 0.5 MG, 1X/DAY FOR 3 DAYS
     Route: 048
     Dates: start: 20090501, end: 20090101
  10. PANTOPRAZOLE SODIUM [Concomitant]
     Indication: GASTROOESOPHAGEAL REFLUX DISEASE
     Dosage: UNK

REACTIONS (4)
  - ORAL CANDIDIASIS [None]
  - VULVOVAGINAL CANDIDIASIS [None]
  - HYPERGLYCAEMIA [None]
  - TACHYCARDIA [None]
